FAERS Safety Report 12505727 (Version 1)
Quarter: 2016Q2

REPORT INFORMATION
  Report Type: Spontaneous
  Country: TR (occurrence: TR)
  Receive Date: 20160628
  Receipt Date: 20160628
  Transmission Date: 20160815
  Serious: Yes (Other)
  Sender: FDA-Public Use
  Company Number: TR-APOTEX-2016AP009204

PATIENT
  Age: 57 Year
  Sex: Female

DRUGS (1)
  1. ALENDRONATE 70 [Suspect]
     Active Substance: ALENDRONATE SODIUM
     Indication: OSTEOPOROSIS
     Dosage: 70 MG, Q.WK.
     Route: 065

REACTIONS (2)
  - Synovitis [Recovered/Resolved]
  - Malaise [Recovered/Resolved]
